FAERS Safety Report 6176404-6 (Version None)
Quarter: 2009Q2

REPORT INFORMATION
  Report Type: 
  Country: None (occurrence: None)
  Receive Date: 20090501
  Receipt Date: 20090428
  Transmission Date: 20091009
  Serious: Yes (Other)
  Sender: FDA-Public Use
  Company Number: AU-MERCK-0903USA04854

PATIENT
  Age: 73 Year
  Sex: Female

DRUGS (4)
  1. ZETIA [Suspect]
     Route: 048
     Dates: start: 20080101
  2. LUCENTIS [Concomitant]
     Indication: MACULAR DEGENERATION
     Route: 051
  3. FENOFIBRATE [Concomitant]
     Indication: HYPERLIPIDAEMIA
     Route: 065
  4. VITAMIN D (UNSPECIFIED) [Concomitant]
     Indication: OSTEOPENIA
     Route: 065

REACTIONS (1)
  - SYSTEMIC LUPUS ERYTHEMATOSUS RASH [None]
